FAERS Safety Report 9259996 (Version 2)
Quarter: 2013Q2

REPORT INFORMATION
  Report Type: Spontaneous
  Country: EE (occurrence: EE)
  Receive Date: 20130429
  Receipt Date: 20130502
  Transmission Date: 20140414
  Serious: Yes (Other)
  Sender: FDA-Public Use
  Company Number: EE-ACCORD-017293

PATIENT
  Age: 47 Year
  Sex: Female

DRUGS (5)
  1. TACROLIMUS [Suspect]
     Indication: IMMUNOSUPPRESSION
     Dosage: 13-15 MG PER 24 HOURS, THE PATIENT HAD ADVAGRAF (NON MAH DRUG)
  2. ORFIRIL [Interacting]
     Indication: CONVULSION
     Dosage: LATER ON, 300MG X 3 FOLLOWED BY?600 MG X 2 P/O ADMINISTERED.
     Route: 048
  3. MYCOPHENOLATE MOFETIL [Concomitant]
     Indication: IMMUNOSUPPRESSION
  4. METHYLPREDNISOLONE [Concomitant]
     Indication: IMMUNOSUPPRESSION
  5. ERTAPENEM [Interacting]
     Indication: PNEUMONIA KLEBSIELLA

REACTIONS (3)
  - Convulsion [Recovered/Resolved]
  - Drug interaction [Unknown]
  - Transplant rejection [Recovered/Resolved]
